FAERS Safety Report 13531784 (Version 2)
Quarter: 2019Q1

REPORT INFORMATION
  Report Type: Spontaneous
  Country: CA (occurrence: CA)
  Receive Date: 20170510
  Receipt Date: 20190302
  Transmission Date: 20190417
  Serious: Yes (Hospitalization, Other)
  Sender: FDA-Public Use
  Company Number: CA-JNJFOC-20170506353

PATIENT
  Age: 62 Year
  Sex: Female

DRUGS (3)
  1. IMODIUM [Suspect]
     Active Substance: LOPERAMIDE HYDROCHLORIDE
     Indication: DIARRHOEA
     Dosage: TREATMENT DURATION 2 DAYS
     Route: 048
     Dates: start: 19810922, end: 19810922
  2. IMODIUM [Suspect]
     Active Substance: LOPERAMIDE HYDROCHLORIDE
     Indication: DIARRHOEA
     Route: 048
     Dates: start: 19810923, end: 19810923
  3. ASENDIN [Suspect]
     Active Substance: AMOXAPINE
     Indication: PERSISTENT DEPRESSIVE DISORDER
     Dosage: TREATMENT DURATION 23 DAYS
     Route: 048
     Dates: start: 19810831, end: 19810923

REACTIONS (8)
  - Haemoglobin decreased [Recovered/Resolved]
  - Incorrect dose administered [Unknown]
  - Lymphopenia [Recovered/Resolved]
  - Drug ineffective [Unknown]
  - White blood cell count decreased [Recovered/Resolved]
  - Platelet count decreased [Recovered/Resolved]
  - Off label use [Unknown]
  - Diarrhoea [Recovered/Resolved]

NARRATIVE: CASE EVENT DATE: 19810922
